FAERS Safety Report 10476197 (Version 2)
Quarter: 2014Q4

REPORT INFORMATION
  Report Type: Spontaneous
  Country: US (occurrence: None)
  Receive Date: 20140923
  Receipt Date: 20141230
  Transmission Date: 20150528
  Serious: Yes (Hospitalization, Other)
  Sender: FDA-Public Use
  Company Number: 2014SMT00078

PATIENT
  Age: 89 Year
  Sex: Male
  Weight: 72.6 kg

DRUGS (3)
  1. REGRANEX [Suspect]
     Active Substance: BECAPLERMIN
     Indication: DIABETIC ULCER
     Route: 061
     Dates: start: 20140801, end: 201408
  2. GLYBURIDE. [Concomitant]
     Active Substance: GLYBURIDE
  3. COLLAGENASE SANTYL [Suspect]
     Active Substance: COLLAGENASE CLOSTRIDIUM HISTOLYTICUM
     Indication: DIABETIC ULCER
     Route: 061
     Dates: start: 20140815

REACTIONS (9)
  - Application site exfoliation [None]
  - Mass [None]
  - Wound complication [None]
  - Wound [None]
  - Peripheral vascular disorder [None]
  - Arterial restenosis [None]
  - Blood potassium increased [None]
  - Renal impairment [None]
  - Cellulitis [None]

NARRATIVE: CASE EVENT DATE: 201408
